FAERS Safety Report 7543627-0 (Version None)
Quarter: 2011Q2

REPORT INFORMATION
  Report Type: 
  Country: None (occurrence: None)
  Receive Date: 20110613
  Receipt Date: 20030221
  Transmission Date: 20111010
  Serious: Yes (Hospitalization, Other)
  Sender: FDA-Public Use
  Company Number: PHHO2003CA00788

PATIENT
  Sex: Male

DRUGS (4)
  1. RENEDIL [Concomitant]
  2. DIOVAN [Suspect]
     Indication: HYPERTENSION
     Dosage: 80MG DAILY
  3. LOPRESSOR [Concomitant]
  4. METOPROLOL SUCCINATE [Concomitant]

REACTIONS (1)
  - ANGINA PECTORIS [None]
